FAERS Safety Report 16014179 (Version 2)
Quarter: 2019Q1

REPORT INFORMATION
  Report Type: Spontaneous
  Country: FR (occurrence: FR)
  Receive Date: 20190227
  Receipt Date: 20190315
  Transmission Date: 20190418
  Serious: Yes (Hospitalization)
  Sender: FDA-Public Use
  Company Number: FR-TEVA-2019-FR-1016403

PATIENT
  Age: 83 Year
  Sex: Male
  Weight: 94 kg

DRUGS (2)
  1. TRAMADOL (CHLORHYDRATE DE) [Suspect]
     Active Substance: TRAMADOL HYDROCHLORIDE
     Indication: PAIN
     Route: 048
     Dates: end: 20180905
  2. TERCIAN 40 MG/ML, SOLUTION BUVABLE EN GOUTTES [Suspect]
     Active Substance: CYAMEMAZINE
     Indication: ACCIDENTAL POISONING
     Route: 048
     Dates: start: 20180905, end: 20180905

REACTIONS (1)
  - Coma [Recovered/Resolved]

NARRATIVE: CASE EVENT DATE: 20180905
